FAERS Safety Report 9270293 (Version 2)
Quarter: 2013Q2

REPORT INFORMATION
  Report Type: Report from Study
  Country: US (occurrence: US)
  Receive Date: 20130503
  Receipt Date: 20130609
  Transmission Date: 20140414
  Serious: Yes (Hospitalization)
  Sender: FDA-Public Use
  Company Number: US-009507513-2012SP007777

PATIENT
  Age: 40 Year
  Sex: Female
  Weight: 83.46 kg

DRUGS (8)
  1. BLINDED CORIFOLLITROPIN ALFA [Suspect]
     Indication: INFERTILITY
     Dosage: UNK
     Route: 058
     Dates: start: 20100928, end: 20100928
  2. BLINDED POST TRIAL THERAPY [Suspect]
     Indication: INFERTILITY
     Dosage: UNK
     Route: 058
     Dates: start: 20100928, end: 20100928
  3. BLINDED PRE TRIAL THERAPY [Suspect]
     Indication: INFERTILITY
     Dosage: UNK
     Route: 058
     Dates: start: 20100928, end: 20100928
  4. BLINDED THERAPY [Suspect]
     Indication: INFERTILITY
     Dosage: UNK
     Route: 058
     Dates: start: 20100928, end: 20101004
  5. MK-8328 [Suspect]
     Indication: INFERTILITY
     Dosage: 300 IU, QD
     Route: 058
     Dates: start: 20101005, end: 20101008
  6. VIVELLE-DOT [Concomitant]
     Indication: INFERTILITY
     Dosage: 200 ?G, QOD
     Route: 062
     Dates: start: 20101119, end: 20110214
  7. CRINONE [Concomitant]
     Indication: INFERTILITY
     Dosage: 92 MG, QAM
     Route: 067
     Dates: start: 20101216, end: 20101223
  8. PROGESTERONE [Concomitant]
     Indication: INFERTILITY
     Dosage: 1 MG, QD
     Route: 030
     Dates: start: 20101223

REACTIONS (2)
  - Uterine leiomyoma [Recovered/Resolved]
  - Uterine leiomyosarcoma [Recovering/Resolving]
